FAERS Safety Report 4933885-0 (Version None)
Quarter: 2006Q1

REPORT INFORMATION
  Report Type: 
  Country: None (occurrence: None)
  Receive Date: 20060307
  Receipt Date: 20060224
  Transmission Date: 20060701
  Serious: Yes (Hospitalization, Other)
  Sender: FDA-Public Use
  Company Number: NSADSS2002045798

PATIENT
  Sex: Female
  Weight: 129.73 kg

DRUGS (37)
  1. REMICADE [Suspect]
     Dosage: RECEIVED A TOTAL OF SIX DOSES
     Route: 041
     Dates: start: 20011112
  2. REMICADE [Suspect]
     Indication: RHEUMATOID ARTHRITIS
     Route: 041
     Dates: start: 20011112
  3. PREDNISONE [Concomitant]
  4. PRIMIDONE [Concomitant]
  5. PRILOSEC [Concomitant]
  6. LASIX [Concomitant]
  7. POTASSIUM [Concomitant]
  8. ZOFRAN [Concomitant]
  9. CALCIUM GLUCONATE [Concomitant]
  10. ZANAFLEX [Concomitant]
  11. METHOTREXATE [Concomitant]
  12. TUMS [Concomitant]
  13. GUAIFENESIN [Concomitant]
  14. FLOVENT [Concomitant]
  15. FLONASE [Concomitant]
  16. CARDIZEM [Concomitant]
  17. DIFLUCAN [Concomitant]
  18. ALBUTEROL [Concomitant]
  19. CLARITIN [Concomitant]
  20. IMITREX [Concomitant]
  21. MORPHINE SULFATE [Concomitant]
     Dosage: EVERY 4-6 HOURS
     Route: 048
  22. DURAGESIC-100 [Concomitant]
     Route: 062
  23. COLACE [Concomitant]
  24. ZINC SULFATE [Concomitant]
  25. OCEAN SPRAY [Concomitant]
  26. MECLIZINE [Concomitant]
  27. ZONALON [Concomitant]
     Route: 061
  28. REMERON [Concomitant]
  29. RESTORIL [Concomitant]
  30. XOPENEX [Concomitant]
     Route: 055
  31. IPRATROPIUM BROMIDE [Concomitant]
     Route: 055
  32. BENADRYL [Concomitant]
  33. PYRIDIUM [Concomitant]
  34. BACTROBAN [Concomitant]
     Route: 061
  35. TESSALON [Concomitant]
     Dosage: TID PRN
  36. MYCOSTATIN [Concomitant]
  37. CEFTIN [Concomitant]

REACTIONS (10)
  - ATELECTASIS [None]
  - CANDIDIASIS [None]
  - DRUG INEFFECTIVE [None]
  - GASTRIC ULCER [None]
  - GASTRITIS HAEMORRHAGIC [None]
  - HELICOBACTER INFECTION [None]
  - OESOPHAGEAL ULCER [None]
  - PLEURAL EFFUSION [None]
  - PNEUMONIA [None]
  - TOE DEFORMITY [None]
